FAERS Safety Report 20032790 (Version 5)
Quarter: 2021Q4

REPORT INFORMATION
  Report Type: Report from Study
  Country: US (occurrence: US)
  Receive Date: 20211104
  Receipt Date: 20211220
  Transmission Date: 20220303
  Serious: No
  Sender: FDA-Public Use
  Company Number: US-NOVARTISTESTPH-NVSC2021US251825

PATIENT
  Age: 55 Year
  Sex: Male

DRUGS (2)
  1. ENTRESTO [Suspect]
     Active Substance: SACUBITRIL\VALSARTAN
     Indication: Product used for unknown indication
     Dosage: 0.5 DF, BID (1/2 TAB AM AND PM FOR 4 DAYS)
     Route: 048
  2. ENTRESTO [Suspect]
     Active Substance: SACUBITRIL\VALSARTAN
     Dosage: 1 DOSAGE FORM, BID (1 TAB AM AND PM)
     Route: 048

REACTIONS (7)
  - Malaise [Unknown]
  - Illness [Unknown]
  - Vomiting [Unknown]
  - Glycosylated haemoglobin increased [Unknown]
  - Cough [Recovering/Resolving]
  - Wrong product administered [Unknown]
  - Wrong technique in product usage process [Recovered/Resolved]
